FAERS Safety Report 4674625-2 (Version None)
Quarter: 2005Q2

REPORT INFORMATION
  Report Type: 
  Country: None (occurrence: None)
  Receive Date: 20050523
  Receipt Date: 20050509
  Transmission Date: 20051028
  Serious: Yes (Other)
  Sender: FDA-Public Use
  Company Number: THYM-10477

PATIENT
  Age: 55 Year
  Sex: Male
  Weight: 111.1313 kg

DRUGS (7)
  1. THYMOGLOBULIN [Suspect]
     Indication: KIDNEY TRANSPLANT REJECTION
     Dosage: 100 MG QD IV
     Route: 042
     Dates: start: 20030311, end: 20030311
  2. THYMOGLOBULIN [Suspect]
     Indication: KIDNEY TRANSPLANT REJECTION
     Dosage: 150 MG QD IV
     Route: 042
     Dates: start: 20030312, end: 20030313
  3. THYMOGLOBULIN [Suspect]
     Indication: KIDNEY TRANSPLANT REJECTION
     Dosage: 100 MG QD IV
     Route: 042
     Dates: start: 20030314, end: 20030314
  4. METHYLPREDNISOLONE [Concomitant]
  5. DIPHENHYDRAMINE HCL [Concomitant]
  6. ACETAMINOPHEN [Concomitant]
  7. METHYLPREDNISOLONE TAPER [Concomitant]

REACTIONS (4)
  - CHILLS [None]
  - DEEP VEIN THROMBOSIS [None]
  - HEADACHE [None]
  - PYREXIA [None]
